FAERS Safety Report 7631851-8 (Version None)
Quarter: 2011Q3

REPORT INFORMATION
  Report Type: 
  Country: None (occurrence: None)
  Receive Date: 20110725
  Receipt Date: 20110415
  Transmission Date: 20111222
  Serious: No
  Sender: FDA-Public Use
  Company Number: US-BRISTOL-MYERS SQUIBB COMPANY-15678071

PATIENT
  Age: 40 Year
  Sex: Female

DRUGS (5)
  1. MAGNESIUM [Concomitant]
  2. COUMADIN [Suspect]
  3. ASPIRIN [Concomitant]
  4. DIGOXIN [Concomitant]
  5. LOPRESSOR [Concomitant]

REACTIONS (1)
  - MENORRHAGIA [None]
